FAERS Safety Report 10790113 (Version 1)
Quarter: 2015Q1

REPORT INFORMATION
  Report Type: Spontaneous
  Country: US (occurrence: US)
  Receive Date: 20150212
  Receipt Date: 20150212
  Transmission Date: 20150721
  Serious: No
  Sender: FDA-Public Use
  Company Number: US-TEVA-540801USA

PATIENT
  Age: 39 Year
  Sex: Female
  Weight: 76.27 kg

DRUGS (2)
  1. NORCO [Concomitant]
     Active Substance: ACETAMINOPHEN\HYDROCODONE BITARTRATE
     Indication: ARTHRALGIA
     Dates: start: 201410
  2. TAKE ACTION [Suspect]
     Active Substance: LEVONORGESTREL
     Indication: POST COITAL CONTRACEPTION
     Dosage: 1.5 MILLIGRAM DAILY;
     Route: 048
     Dates: start: 20150113, end: 20150113

REACTIONS (4)
  - Menorrhagia [Recovered/Resolved]
  - Vaginal haemorrhage [Not Recovered/Not Resolved]
  - Menstruation irregular [Recovered/Resolved]
  - Breast discomfort [Recovered/Resolved]

NARRATIVE: CASE EVENT DATE: 20150119
